FAERS Safety Report 25281792 (Version 1)
Quarter: 2025Q2

REPORT INFORMATION
  Report Type: Spontaneous
  Country: CN (occurrence: CN)
  Receive Date: 20250508
  Receipt Date: 20250508
  Transmission Date: 20250716
  Serious: Yes (Hospitalization)
  Sender: STRIDES
  Company Number: None

PATIENT
  Age: 66 Year
  Sex: Female

DRUGS (4)
  1. VANCOMYCIN [Suspect]
     Active Substance: VANCOMYCIN
     Indication: Acinetobacter infection
     Route: 065
     Dates: start: 2024, end: 2024
  2. MEROPENEM [Suspect]
     Active Substance: MEROPENEM
     Indication: Acinetobacter infection
     Route: 065
     Dates: start: 2024, end: 2024
  3. POLYMYXIN [Suspect]
     Active Substance: POLYMYXIN
     Indication: Acinetobacter infection
     Route: 065
     Dates: start: 2024, end: 2024
  4. AMIKACIN [Suspect]
     Active Substance: AMIKACIN
     Indication: Acinetobacter infection
     Route: 065
     Dates: start: 2024, end: 2024

REACTIONS (2)
  - Trichosporon infection [Recovered/Resolved]
  - Intracranial infection [Recovered/Resolved]

NARRATIVE: CASE EVENT DATE: 20240806
